FAERS Safety Report 7352712-8 (Version None)
Quarter: 2011Q1

REPORT INFORMATION
  Report Type: 
  Country: None (occurrence: None)
  Receive Date: 20110302
  Receipt Date: 20101005
  Transmission Date: 20110831
  Serious: Yes (Other)
  Sender: FDA-Public Use
  Company Number: 316017

PATIENT
  Age: 54 Year
  Sex: Female

DRUGS (3)
  1. METFORMIN (METFORMIN) [Concomitant]
  2. NOVOLIN 70/30 [Suspect]
     Indication: TYPE 2 DIABETES MELLITUS
     Dosage: 25 U IN THE MORNING, SUBCUTANEOUS, 15 U AT NIGHT, SUBCUTANEOUS
     Route: 058
     Dates: start: 20100701, end: 20101002
  3. NOVOLIN 70/30 [Suspect]
     Indication: TYPE 2 DIABETES MELLITUS
     Dosage: 25 U IN THE MORNING, SUBCUTANEOUS, 15 U AT NIGHT, SUBCUTANEOUS
     Route: 058
     Dates: start: 20100701, end: 20101002

REACTIONS (1)
  - HYPOGLYCAEMIC UNCONSCIOUSNESS [None]
